FAERS Safety Report 4911865-9 (Version None)
Quarter: 2006Q1

REPORT INFORMATION
  Report Type: 
  Country: None (occurrence: None)
  Receive Date: 20060215
  Receipt Date: 20060203
  Transmission Date: 20060701
  Serious: Yes (Other)
  Sender: FDA-Public Use
  Company Number: FR-JNJFOC-20060101040

PATIENT
  Sex: Female

DRUGS (2)
  1. REMINYL [Suspect]
     Route: 048
  2. EBIXA [Concomitant]

REACTIONS (1)
  - CYTOLYTIC HEPATITIS [None]
